FAERS Safety Report 5475570-5 (Version None)
Quarter: 2007Q4

REPORT INFORMATION
  Report Type: 
  Country: None (occurrence: None)
  Receive Date: 20071003
  Receipt Date: 20061212
  Transmission Date: 20080405
  Serious: No
  Sender: FDA-Public Use
  Company Number: US-KINGPHARMUSA00001-K200601572

PATIENT

DRUGS (6)
  1. SONATA [Suspect]
     Indication: INSOMNIA
     Dosage: 10 MG, PRN
     Route: 048
  2. SYNTHROID [Concomitant]
     Indication: BLOOD THYROID STIMULATING HORMONE DECREASED
     Dosage: .125 UNK, QW SUNDAY
     Route: 048
  3. SYNTHROID [Concomitant]
     Dosage: .112 UNK, QD MON-SAT
     Route: 048
  4. PREVACID [Concomitant]
     Indication: GASTROOESOPHAGEAL REFLUX DISEASE
     Dosage: 30 MG, QD
     Route: 048
  5. TYLENOL (CAPLET) [Concomitant]
     Indication: PAIN
     Dosage: 650 MG, PRN
     Route: 048
  6. TRAMADOL HCL [Concomitant]
     Indication: PAIN
     Dosage: UNK, PRN
     Route: 048

REACTIONS (1)
  - COUGH [None]
